FAERS Safety Report 7396701-6 (Version None)
Quarter: 2011Q2

REPORT INFORMATION
  Report Type: 
  Country: None (occurrence: None)
  Receive Date: 20110406
  Receipt Date: 20110323
  Transmission Date: 20111010
  Serious: Yes (Disabling)
  Sender: FDA-Public Use
  Company Number: BR-ROCHE-767320

PATIENT
  Sex: Male
  Weight: 72 kg

DRUGS (2)
  1. CELLCEPT [Suspect]
     Indication: AUTOIMMUNE DISORDER
     Route: 065
  2. MYFORTIC [Suspect]
     Indication: AUTOIMMUNE DISORDER
     Route: 065

REACTIONS (6)
  - BLOOD CHOLESTEROL INCREASED [None]
  - MOVEMENT DISORDER [None]
  - BLINDNESS [None]
  - ABDOMINAL DISTENSION [None]
  - UVEITIS [None]
  - BLOOD GLUCOSE INCREASED [None]
